FAERS Safety Report 8843448 (Version 1)
Quarter: 2012Q4

REPORT INFORMATION
  Report Type: 
  Country: MA (occurrence: MA)
  Receive Date: 20121016
  Receipt Date: 20121016
  Transmission Date: 20130627
  Serious: Yes (Hospitalization, Other)
  Sender: FDA-Public Use
  Company Number: MA-BAYER-2012-104339

PATIENT
  Age: 50 Year
  Sex: Female

DRUGS (4)
  1. ACETYLSALICYLIC ACID({=100 MG) [Suspect]
     Indication: AORTIC VALVE REPLACEMENT
     Dosage: Daily dose 160 mg
     Route: 048
  2. ACETYLSALICYLIC ACID({=100 MG) [Interacting]
     Indication: MITRAL VALVE REPLACEMENT
  3. SINTROM [Interacting]
     Indication: AORTIC VALVE REPLACEMENT
     Dosage: Daily dose 8 mg
     Route: 048
  4. SINTROM [Interacting]
     Indication: MITRAL VALVE REPLACEMENT

REACTIONS (9)
  - Hypocoagulable state [Recovered/Resolved]
  - Haematuria [None]
  - Melaena [None]
  - Injection site haematoma [None]
  - Haemobilia [Recovered/Resolved]
  - Perirenal haematoma [Recovering/Resolving]
  - Shock [Recovered/Resolved]
  - Anaemia [Recovering/Resolving]
  - Small intestinal haemorrhage [Recovered/Resolved]
